FAERS Safety Report 11721279 (Version 3)
Quarter: 2016Q2

REPORT INFORMATION
  Report Type: Spontaneous
  Country: BG (occurrence: BG)
  Receive Date: 20151111
  Receipt Date: 20160623
  Transmission Date: 20160815
  Serious: Yes (Other)
  Sender: FDA-Public Use
  Company Number: BG-AMGEN-BGRSP2015118393

PATIENT
  Age: 61 Year
  Sex: Female

DRUGS (3)
  1. VIGANTOL [Concomitant]
     Route: 048
  2. PROLIA [Suspect]
     Active Substance: DENOSUMAB
     Indication: OSTEOPOROSIS
     Dosage: 1 DF, Q6MO
     Route: 065
     Dates: start: 20150421
  3. BISOGAMMA [Concomitant]
     Active Substance: BISOPROLOL FUMARATE

REACTIONS (3)
  - Eye haemorrhage [Unknown]
  - Vitreous detachment [Not Recovered/Not Resolved]
  - Laboratory test abnormal [Unknown]

NARRATIVE: CASE EVENT DATE: 20150910
